FAERS Safety Report 15906657 (Version 3)
Quarter: 2019Q2

REPORT INFORMATION
  Report Type: Spontaneous
  Country: US (occurrence: US)
  Receive Date: 20190204
  Receipt Date: 20190404
  Transmission Date: 20190711
  Serious: No
  Sender: FDA-Public Use
  Company Number: US-SA-2019SA025870

PATIENT
  Age: 70 Year
  Sex: Female
  Weight: 68.03 kg

DRUGS (1)
  1. PRALUENT [Suspect]
     Active Substance: ALIROCUMAB
     Indication: BLOOD CHOLESTEROL INCREASED
     Dosage: 300 MG, Q4W
     Route: 058
     Dates: start: 20181010

REACTIONS (5)
  - Product administered at inappropriate site [Recovered/Resolved]
  - Injection site swelling [Recovering/Resolving]
  - Injection site hypoaesthesia [Recovering/Resolving]
  - Device use issue [Unknown]
  - Injury associated with device [Recovering/Resolving]

NARRATIVE: CASE EVENT DATE: 20190124
